FAERS Safety Report 9041558 (Version 1)
Quarter: 2013Q1

REPORT INFORMATION
  Report Type: Report from Study
  Country: US (occurrence: US)
  Receive Date: 20130129
  Receipt Date: 20130129
  Transmission Date: 20140127
  Serious: No
  Sender: FDA-Public Use
  Company Number: US-ABBOTT-12P-163-0889280-00

PATIENT
  Sex: Female
  Weight: 45.4 kg

DRUGS (6)
  1. HUMIRA 40 MG/0.8 ML PEN [Suspect]
     Indication: CROHN^S DISEASE
     Dates: start: 20111105, end: 20120124
  2. HUMIRA 40 MG/0.8 ML PEN [Suspect]
     Dates: start: 20120124
  3. AZATHIOPRINE [Concomitant]
     Indication: CROHN^S DISEASE
  4. FOLIC ACID [Concomitant]
     Indication: VITAMIN SUPPLEMENTATION
  5. ENTOCORT [Concomitant]
     Indication: CROHN^S DISEASE
  6. PRILOSEC [Concomitant]
     Indication: GASTROOESOPHAGEAL REFLUX DISEASE

REACTIONS (5)
  - Crohn^s disease [Unknown]
  - Injection site pain [Not Recovered/Not Resolved]
  - Drug ineffective [Not Recovered/Not Resolved]
  - Gastrointestinal inflammation [Not Recovered/Not Resolved]
  - Incorrect dose administered [Unknown]
